FAERS Safety Report 18582400 (Version 4)
Quarter: 2022Q2

REPORT INFORMATION
  Report Type: Spontaneous
  Country: DE (occurrence: DE)
  Receive Date: 20201205
  Receipt Date: 20220408
  Transmission Date: 20220721
  Serious: Yes (Other)
  Sender: FDA-Public Use
  Company Number: DE-002147023-NVSC2020DE268087

PATIENT
  Sex: Female

DRUGS (14)
  1. BISOPROLOL [Suspect]
     Active Substance: BISOPROLOL
     Indication: Product used for unknown indication
     Dosage: 2.5 DOSAGE FORM ((0.5 DF IN THE MORNINGS, 1 DF IN THE EVENINGS)
     Route: 065
  2. BISOPROLOL [Suspect]
     Active Substance: BISOPROLOL
     Dosage: 1 DOSAGE FORM, ONCE A DAY
     Route: 065
     Dates: end: 202009
  3. BISOPROLOL [Suspect]
     Active Substance: BISOPROLOL
     Dosage: 2 DOSAGE FORM, ONCE A DAY
     Route: 065
     Dates: start: 202009
  4. BISOPROLOL [Suspect]
     Active Substance: BISOPROLOL
     Dosage: 1 UNK1 DF, UNKNOWN ( 1/2-0- 1/2)
     Route: 065
  5. DIOVAN [Suspect]
     Active Substance: VALSARTAN
     Indication: Product used for unknown indication
     Dosage: 1 DOSAGE FORM, ONCE A DAY
     Route: 065
     Dates: end: 202009
  6. ENTRESTO [Suspect]
     Active Substance: SACUBITRIL\VALSARTAN
     Indication: Product used for unknown indication
     Dosage: 50 MILLIGRAM, ONCE A DAY (24/26MG)
     Route: 065
     Dates: start: 202009
  7. ENTRESTO [Suspect]
     Active Substance: SACUBITRIL\VALSARTAN
     Dosage: 2 DOSAGE FORM, TWO TIMES A DAY (49/51MG)
     Route: 065
     Dates: start: 202009
  8. ENTRESTO [Suspect]
     Active Substance: SACUBITRIL\VALSARTAN
     Dosage: 2 DOSAGE FORM (50 MG, QD (24/26MG) )
     Route: 065
     Dates: start: 202009
  9. ENTRESTO [Suspect]
     Active Substance: SACUBITRIL\VALSARTAN
     Dosage: 4 DOSAGE FORM
     Route: 065
     Dates: start: 20210107
  10. SPIRONOLACTONE [Suspect]
     Active Substance: SPIRONOLACTONE
     Indication: Product used for unknown indication
     Dosage: UNK
     Route: 065
  11. SPIRONOLACTONE [Suspect]
     Active Substance: SPIRONOLACTONE
     Dosage: 50 MILLIGRAM (HALF A TABLET IN THE MORNINGS)
     Route: 065
  12. SPIRONOLACTONE [Suspect]
     Active Substance: SPIRONOLACTONE
     Dosage: 0.5 DOSAGE FORM (0.5 DF, QOD )
     Route: 065
  13. LEVOTHYROXINE SODIUM [Concomitant]
     Active Substance: LEVOTHYROXINE SODIUM
     Indication: Hypothyroidism
     Dosage: UNK, (ONCE IN THE MORNING)
     Route: 065
  14. XARELTO [Concomitant]
     Active Substance: RIVAROXABAN
     Indication: Product used for unknown indication
     Dosage: UNK, ONCE A DAY (ONCE IN THE MORNINGS)
     Route: 065

REACTIONS (7)
  - Hypotension [Unknown]
  - Insomnia [Recovered/Resolved]
  - Malaise [Recovered/Resolved]
  - Blood creatinine increased [Unknown]
  - Blood potassium increased [Unknown]
  - N-terminal prohormone brain natriuretic peptide increased [Recovered/Resolved]
  - Wrong technique in product usage process [Unknown]
